FAERS Safety Report 19960112 (Version 1)
Quarter: 2021Q4

REPORT INFORMATION
  Report Type: Report from Study
  Country: US (occurrence: US)
  Receive Date: 20211015
  Receipt Date: 20211015
  Transmission Date: 20220303
  Serious: Yes (Other)
  Sender: FDA-Public Use
  Company Number: US-BAYER-2021A230737

PATIENT
  Age: 69 Year
  Sex: Male

DRUGS (7)
  1. STIVARGA [Suspect]
     Active Substance: REGORAFENIB
     Indication: Malignant joint neoplasm
     Dosage: DAILY DOSE 120 MG EVERY MORNING 21 DAYS ON AND 7 DAYS OFF
     Dates: start: 20201023, end: 20210929
  2. STIVARGA [Suspect]
     Active Substance: REGORAFENIB
     Indication: Bone neoplasm
  3. ACIPHEX [Concomitant]
     Active Substance: RABEPRAZOLE SODIUM
     Dosage: UNK
  4. ELIQUIS [Concomitant]
     Active Substance: APIXABAN
     Dosage: UNK
  5. ASCORBIC ACID [Concomitant]
     Active Substance: ASCORBIC ACID
     Dosage: UNK
  6. DIPHENHYDRAMINE HYDROCHLORIDE [Concomitant]
     Active Substance: DIPHENHYDRAMINE HYDROCHLORIDE
     Dosage: UNK
  7. DRONABINOL [Concomitant]
     Active Substance: DRONABINOL
     Dosage: UNK

REACTIONS (9)
  - Lung disorder [None]
  - Haemorrhage [None]
  - Decreased appetite [None]
  - Weight decreased [None]
  - Taste disorder [None]
  - Anxiety [None]
  - Fluid retention [None]
  - Drug ineffective for unapproved indication [Not Recovered/Not Resolved]
  - Off label use [None]
